FAERS Safety Report 10996916 (Version 1)
Quarter: 2015Q2

REPORT INFORMATION
  Report Type: Spontaneous
  Country: US (occurrence: None)
  Receive Date: 20150407
  Receipt Date: 20150407
  Transmission Date: 20150821
  Serious: Yes (Hospitalization)
  Sender: FDA-Public Use
  Company Number: None

PATIENT
  Age: 28 Year
  Sex: Male
  Weight: 99.9 kg

DRUGS (1)
  1. ARIPIPRAZOLE. [Suspect]
     Active Substance: ARIPIPRAZOLE
     Indication: BIPOLAR I DISORDER
     Dosage: OTHER
     Route: 030
     Dates: start: 20150123, end: 20150130

REACTIONS (7)
  - Anxiety [None]
  - Suicidal ideation [None]
  - Vitamin B12 decreased [None]
  - Akathisia [None]
  - Restless legs syndrome [None]
  - Agitation [None]
  - Blood iron decreased [None]

NARRATIVE: CASE EVENT DATE: 20150203
